FAERS Safety Report 4725127-6 (Version None)
Quarter: 2005Q3

REPORT INFORMATION
  Report Type: 
  Country: None (occurrence: None)
  Receive Date: 20050726
  Receipt Date: 20050716
  Transmission Date: 20060218
  Serious: Yes (Life-Threatening, Other)
  Sender: FDA-Public Use
  Company Number: GXKR2005DE01332

PATIENT
  Age: 43 Year
  Sex: Female

DRUGS (6)
  1. HEPARIN [Suspect]
     Indication: MYOCARDIAL INFARCTION
     Dosage: 9000 U BOLUS; 5000 IU, BID, SUBCUTANEOUS; 5000 U BOLUS, INTRAVENOUS; INTRAVENOUS
  2. ASPIRIN [Suspect]
     Dosage: 160 MG DAILY; 325 MG DAILY; 81 MG DAILY; 75 MG, ORAL
  3. SIMVASTATIN [Suspect]
  4. CLOPIDOGREL BISULFATE [Suspect]
     Dosage: 300 MG, ORAL; 75 MG, ORAL
     Route: 048
  5. ABCIXIMAB (ABCIXIMAB) [Concomitant]
  6. DANAPAROID (DANAPAROID) [Concomitant]

REACTIONS (4)
  - DRUG INTERACTION [None]
  - HEPARIN-INDUCED THROMBOCYTOPENIA [None]
  - INTRACARDIAC THROMBUS [None]
  - THROMBOTIC STROKE [None]
